FAERS Safety Report 4555941-1 (Version None)
Quarter: 2005Q1

REPORT INFORMATION
  Report Type: 
  Country: None (occurrence: None)
  Receive Date: 20050112
  Receipt Date: 20040310
  Transmission Date: 20050727
  Serious: Yes (Hospitalization)
  Sender: FDA-Public Use
  Company Number: WAES 0403USA00904

PATIENT
  Age: 54 Year
  Sex: Female

DRUGS (6)
  1. DECADRON [Suspect]
     Indication: PROPHYLAXIS
     Dosage: 10 MG/DAILY/PO
     Route: 048
     Dates: start: 20031201
  2. BLINDED THERAPY [Suspect]
     Dosage: SC
     Route: 058
     Dates: start: 20030305, end: 20040225
  3. KEPPRA [Concomitant]
  4. LIPITOR [Concomitant]
  5. PRILOSEC [Concomitant]
  6. XANAX [Concomitant]

REACTIONS (1)
  - DIABETES MELLITUS [None]
